FAERS Safety Report 23561923 (Version 1)
Quarter: 2024Q1

REPORT INFORMATION
  Report Type: Spontaneous
  Country: FR (occurrence: FR)
  Receive Date: 20240225
  Receipt Date: 20240225
  Transmission Date: 20240410
  Serious: Yes (Life-Threatening, Other)
  Sender: FDA-Public Use
  Company Number: FR-AFSSAPS-NT2024000085

PATIENT
  Age: 68 Year
  Sex: Male
  Weight: 95 kg

DRUGS (3)
  1. FUROSEMIDE [Suspect]
     Active Substance: FUROSEMIDE
     Indication: Type 2 diabetes mellitus
     Dosage: 60 MILLIGRAM (60 MG / DAY ORALLY THEN 26/01 80 MG / DAY IVD, THEN FROM 27/01 20 MG IV 3 TIMES PER DA
     Route: 048
     Dates: end: 20240130
  2. IRBESARTAN [Suspect]
     Active Substance: IRBESARTAN
     Indication: Type 2 diabetes mellitus
     Dosage: 300 MILLIGRAM
     Route: 048
     Dates: end: 20240130
  3. METFORMIN [Suspect]
     Active Substance: METFORMIN HYDROCHLORIDE
     Indication: Type 2 diabetes mellitus
     Dosage: 2250 MILLIGRAM, ONCE A DAY (850 MG 3 PER DAY)
     Route: 048
     Dates: end: 20240130

REACTIONS (2)
  - Acute kidney injury [Recovering/Resolving]
  - Lactic acidosis [Recovering/Resolving]

NARRATIVE: CASE EVENT DATE: 20240130
